FAERS Safety Report 8279608 (Version 3)
Quarter: 2014Q2

REPORT INFORMATION
  Report Type: Report from Study
  Country: US (occurrence: US)
  Receive Date: 20111208
  Receipt Date: 20140428
  Transmission Date: 20141212
  Serious: Yes (Death, Hospitalization)
  Sender: FDA-Public Use
  Company Number: US-ASTELLAS-2011US008182

PATIENT
  Age: 67 Year
  Sex: Male

DRUGS (7)
  1. ERLOTINIB [Suspect]
     Indication: PANCREATIC CARCINOMA METASTATIC
     Route: 048
     Dates: start: 20110930, end: 20111003
  2. GEMCITABINE [Suspect]
     Indication: PANCREATIC CARCINOMA METASTATIC
     Route: 042
     Dates: start: 20110929, end: 20111006
  3. VICODIN [Concomitant]
     Indication: PAIN
     Dosage: 5/500 MG PER 5-6 HRS
     Route: 048
     Dates: start: 20110914, end: 20111028
  4. LISINOPRIL [Concomitant]
     Indication: HYPERTENSION
     Route: 048
     Dates: start: 2005, end: 20111028
  5. ACTONEL [Concomitant]
     Indication: PRODUCT USED FOR UNKNOWN INDICATION
     Route: 048
     Dates: start: 2005, end: 20111028
  6. NEXIUM [Concomitant]
     Indication: DYSPEPSIA
     Route: 048
     Dates: start: 2005, end: 20111028
  7. FENTANYL [Concomitant]
     Indication: PAIN
     Route: 065
     Dates: start: 20110922, end: 20111028

REACTIONS (4)
  - Hyponatraemia [Unknown]
  - Dyspnoea [Fatal]
  - Pneumonitis chemical [Unknown]
  - Incorrect dose administered [Unknown]
